FAERS Safety Report 5073310-5 (Version None)
Quarter: 2006Q3

REPORT INFORMATION
  Report Type: 
  Country: None (occurrence: None)
  Receive Date: 20060706
  Receipt Date: 20060323
  Transmission Date: 20061208
  Serious: No
  Sender: FDA-Public Use
  Company Number: 200611811BWH

PATIENT
  Sex: Male

DRUGS (5)
  1. LEVITRA [Suspect]
     Indication: ERECTILE DYSFUNCTION
     Dosage: 20 MG, ONCE, ORAL
     Route: 048
     Dates: start: 20060319
  2. AVANDIA [Concomitant]
  3. VYTORIN [Concomitant]
  4. GLUCOPHAGE [Concomitant]
  5. DIOVAN [Concomitant]

REACTIONS (1)
  - ERECTILE DYSFUNCTION [None]
